FAERS Safety Report 6293239-4 (Version None)
Quarter: 2009Q3

REPORT INFORMATION
  Report Type: 
  Country: None (occurrence: None)
  Receive Date: 20090731
  Receipt Date: 20090728
  Transmission Date: 20100115
  Serious: No
  Sender: FDA-Public Use
  Company Number: US-B.I. PHARMACEUTICALS,INC./RIDGEFIELD-2009-BP-08881BP

PATIENT
  Age: 73 Year
  Sex: Female

DRUGS (7)
  1. SPIRIVA [Suspect]
     Indication: DYSPNOEA
     Dosage: 18 MCG
     Route: 055
     Dates: start: 20090701, end: 20090728
  2. SPIRIVA [Suspect]
     Dosage: 18 MCG
     Route: 055
     Dates: start: 20090615
  3. ADVAIR HFA [Concomitant]
     Indication: ASTHMA
  4. SINGULAIR [Concomitant]
     Indication: ASTHMA
  5. BYSTOLIC [Concomitant]
     Indication: HYPERTENSION
  6. BENICAR [Concomitant]
     Indication: HYPERTENSION
  7. CLONIDINE (DAVA PHARMA) [Concomitant]
     Indication: HYPERTENSION

REACTIONS (4)
  - DYSPHONIA [None]
  - GASTROOESOPHAGEAL REFLUX DISEASE [None]
  - PRODUCTIVE COUGH [None]
  - TONGUE DISCOLOURATION [None]
